FAERS Safety Report 5316499-2 (Version None)
Quarter: 2007Q2

REPORT INFORMATION
  Report Type: 
  Country: None (occurrence: None)
  Receive Date: 20070504
  Receipt Date: 20070426
  Transmission Date: 20071010
  Serious: Yes (Hospitalization, Other)
  Sender: FDA-Public Use
  Company Number: PHHO2007US06696

PATIENT
  Age: 77 Year
  Sex: Female
  Weight: 75 kg

DRUGS (4)
  1. LOTREL [Suspect]
     Indication: HYPERTENSION
     Dosage: LEVEL 1
     Route: 048
     Dates: start: 20040423
  2. LOTREL [Suspect]
     Dosage: LEVEL 3
     Route: 048
     Dates: end: 20070405
  3. ATENOLOL [Concomitant]
     Indication: HYPERTENSION
  4. COUMADIN [Suspect]
     Indication: ATRIAL FIBRILLATION

REACTIONS (16)
  - ABDOMINAL PAIN [None]
  - ASTHENIA [None]
  - ATRIAL FIBRILLATION [None]
  - BLOOD CREATININE INCREASED [None]
  - BLOOD UREA INCREASED [None]
  - COLITIS [None]
  - DIVERTICULUM [None]
  - DIZZINESS [None]
  - GASTROINTESTINAL HAEMORRHAGE [None]
  - HAEMATOCHEZIA [None]
  - HAEMATOCRIT DECREASED [None]
  - HYPERHIDROSIS [None]
  - HYPONATRAEMIA [None]
  - HYPOTENSION [None]
  - NAUSEA [None]
  - WHITE BLOOD CELL COUNT INCREASED [None]
